FAERS Safety Report 5835364-5 (Version None)
Quarter: 2008Q3

REPORT INFORMATION
  Report Type: 
  Country: None (occurrence: None)
  Receive Date: 20080804
  Receipt Date: 20080723
  Transmission Date: 20090109
  Serious: Yes (Hospitalization)
  Sender: FDA-Public Use
  Company Number: 2008AL008842

PATIENT
  Age: 66 Year
  Sex: Female

DRUGS (13)
  1. CLONAZEPAM [Suspect]
     Indication: SLEEP APNOEA SYNDROME
     Dosage: 2 MG; HS; PO
     Route: 048
     Dates: start: 19900101
  2. SEROQUEL [Concomitant]
  3. PLAVIX [Concomitant]
  4. LOVASTATIN [Concomitant]
  5. METOPROLOL [Concomitant]
  6. LISINOPRIL [Concomitant]
  7. MECLIZINE [Concomitant]
  8. DARVOCET [Concomitant]
  9. NORVASC [Concomitant]
  10. CELEBREX [Concomitant]
  11. NEXIUM [Concomitant]
  12. TRICOR [Concomitant]
  13. LYRICA [Concomitant]

REACTIONS (11)
  - ARTHRITIS [None]
  - DYSPNOEA [None]
  - FEELING ABNORMAL [None]
  - GASTROOESOPHAGEAL REFLUX DISEASE [None]
  - HYPERCHOLESTEROLAEMIA [None]
  - HYPERTENSION [None]
  - MENTAL DISORDER [None]
  - MYOCARDIAL INFARCTION [None]
  - OFF LABEL USE [None]
  - TREATMENT NONCOMPLIANCE [None]
  - WITHDRAWAL SYNDROME [None]
